FAERS Safety Report 21911816 (Version 1)
Quarter: 2023Q1

REPORT INFORMATION
  Report Type: Spontaneous
  Country: US (occurrence: US)
  Receive Date: 20230125
  Receipt Date: 20230125
  Transmission Date: 20230417
  Serious: No
  Sender: FDA-Public Use
  Company Number: US-ALLERGAN-2217420US

PATIENT
  Sex: Female

DRUGS (2)
  1. BOTOX [Suspect]
     Active Substance: ONABOTULINUMTOXINA
     Indication: Torticollis
     Dosage: UNK UNK, SINGLE
     Dates: start: 20220516, end: 20220516
  2. BOTOX [Suspect]
     Active Substance: ONABOTULINUMTOXINA
     Indication: Essential tremor

REACTIONS (3)
  - Off label use [Unknown]
  - Malaise [Unknown]
  - Cough [Unknown]
